FAERS Safety Report 19516250 (Version 1)
Quarter: 2021Q3

REPORT INFORMATION
  Report Type: Spontaneous
  Country: US (occurrence: US)
  Receive Date: 20210709
  Receipt Date: 20210709
  Transmission Date: 20211014
  Serious: Yes (Other)
  Sender: FDA-Public Use
  Company Number: US-ASTELLAS-2021US009512

PATIENT
  Sex: Male

DRUGS (1)
  1. MYRBETRIQ [Suspect]
     Active Substance: MIRABEGRON
     Indication: PROSTATIC DISORDER
     Dosage: UNK UNK, UNKNOWN FREQ.
     Route: 065
     Dates: start: 20210310, end: 20210311

REACTIONS (3)
  - Product use in unapproved indication [Unknown]
  - Urinary retention [Unknown]
  - Dysuria [Unknown]
